FAERS Safety Report 23674561 (Version 2)
Quarter: 2024Q1

REPORT INFORMATION
  Report Type: Spontaneous
  Country: DE (occurrence: DE)
  Receive Date: 20240326
  Receipt Date: 20240329
  Transmission Date: 20240409
  Serious: Yes (Death, Life-Threatening, Hospitalization, Other)
  Sender: FDA-Public Use
  Company Number: DE-BFARM-24002152

PATIENT
  Sex: Male
  Weight: 70 kg

DRUGS (6)
  1. OFEV [Suspect]
     Active Substance: NINTEDANIB
     Indication: Pulmonary fibrosis
     Route: 048
     Dates: start: 20240104, end: 20240117
  2. CANDESARTAN CILEXETIL\HYDROCHLOROTHIAZIDE [Concomitant]
     Active Substance: CANDESARTAN CILEXETIL\HYDROCHLOROTHIAZIDE
     Indication: Hypertension
     Dosage: LONG TERM MEDICATION
  3. CANDESARTAN CILEXETIL\HYDROCHLOROTHIAZIDE [Concomitant]
     Active Substance: CANDESARTAN CILEXETIL\HYDROCHLOROTHIAZIDE
     Indication: Coronary artery disease
  4. METOPROLOL [Concomitant]
     Active Substance: METOPROLOL
     Indication: Hypertension
     Dosage: LONG TERM MEDICATION
  5. METOPROLOL [Concomitant]
     Active Substance: METOPROLOL
     Indication: Coronary artery disease
  6. Metformin/Glibenclamid [Concomitant]
     Indication: Diabetes mellitus

REACTIONS (9)
  - Hypoxia [Fatal]
  - Hepatorenal syndrome [Fatal]
  - Hypertransaminasaemia [Unknown]
  - Asthenia [Unknown]
  - Localised oedema [Unknown]
  - Oedema peripheral [Unknown]
  - Oedema [Unknown]
  - Blood glucose fluctuation [Unknown]
  - Decreased appetite [Unknown]
